FAERS Safety Report 5079148-7 (Version None)
Quarter: 2006Q3

REPORT INFORMATION
  Report Type: 
  Country: None (occurrence: None)
  Receive Date: 20060814
  Receipt Date: 20060519
  Transmission Date: 20061208
  Serious: Yes (Hospitalization)
  Sender: FDA-Public Use
  Company Number: CA-GLAXOSMITHKLINE-A0607017A

PATIENT
  Age: 44 Year
  Sex: Female
  Weight: 54.5 kg

DRUGS (2)
  1. AMERGE [Suspect]
     Indication: MIGRAINE
     Dosage: 2.5MG THREE TIMES PER DAY
     Route: 048
     Dates: start: 20010101, end: 20031004
  2. MAXALT [Suspect]
     Indication: DRUG USE FOR UNKNOWN INDICATION
     Dosage: 10MG SINGLE DOSE
     Route: 065
     Dates: start: 20031001, end: 20031001

REACTIONS (7)
  - ASTHENIA [None]
  - HYPERTENSION [None]
  - MYALGIA [None]
  - MYOCLONUS [None]
  - PARAESTHESIA [None]
  - TACHYCARDIA [None]
  - TREMOR [None]
